FAERS Safety Report 9153652 (Version 11)
Quarter: 2014Q3

REPORT INFORMATION
  Report Type: Spontaneous
  Country: GB (occurrence: GB)
  Receive Date: 20130311
  Receipt Date: 20140725
  Transmission Date: 20150326
  Serious: Yes (Other)
  Sender: FDA-Public Use
  Company Number: PHFR2013GB001595

PATIENT
  Age: 44 Year
  Sex: Female

DRUGS (1)
  1. CLOZARIL [Suspect]
     Active Substance: CLOZAPINE
     Indication: SCHIZOPHRENIA
     Dosage: UNK
     Route: 048
     Dates: start: 20100205

REACTIONS (3)
  - Liver disorder [Recovering/Resolving]
  - Platelet count decreased [Not Recovered/Not Resolved]
  - Cholecystitis infective [Unknown]

NARRATIVE: CASE EVENT DATE: 20130225
